FAERS Safety Report 7066530-1 (Version None)
Quarter: 2010Q4

REPORT INFORMATION
  Report Type: 
  Country: None (occurrence: None)
  Receive Date: 20101027
  Receipt Date: 20100121
  Transmission Date: 20110411
  Serious: No
  Sender: FDA-Public Use
  Company Number: US-WYE-H13119210

PATIENT
  Sex: Female

DRUGS (1)
  1. PREMPRO [Suspect]
     Dosage: 0.625MG/2.5MG DAILY
     Route: 048
     Dates: start: 20090101

REACTIONS (1)
  - COELIAC DISEASE [None]
